FAERS Safety Report 25321985 (Version 1)
Quarter: 2025Q2

REPORT INFORMATION
  Report Type: Spontaneous
  Country: US (occurrence: US)
  Receive Date: 20250516
  Receipt Date: 20250516
  Transmission Date: 20250717
  Serious: No
  Sender: BIOGEN
  Company Number: US-BIOGEN-2025BI01297776

PATIENT
  Sex: Female

DRUGS (20)
  1. TYSABRI [Suspect]
     Active Substance: NATALIZUMAB
     Indication: Relapsing-remitting multiple sclerosis
     Dosage: INFUSED OVER 1 HOUR
     Route: 050
     Dates: start: 20180820
  2. AMPYRA [Concomitant]
     Active Substance: DALFAMPRIDINE
     Route: 050
  3. CHOLECALCIFEROL [Concomitant]
     Active Substance: CHOLECALCIFEROL
     Route: 050
  4. CHOLECALCIFEROL [Concomitant]
     Active Substance: CHOLECALCIFEROL
     Route: 050
  5. PRILOSEC [Concomitant]
     Active Substance: OMEPRAZOLE MAGNESIUM
     Route: 050
  6. PRILOSEC [Concomitant]
     Active Substance: OMEPRAZOLE MAGNESIUM
     Route: 050
  7. NORVASC [Concomitant]
     Active Substance: AMLODIPINE BESYLATE
     Route: 050
  8. NORVASC [Concomitant]
     Active Substance: AMLODIPINE BESYLATE
     Route: 050
  9. VALTREX [Concomitant]
     Active Substance: VALACYCLOVIR HYDROCHLORIDE
     Route: 050
  10. VALTREX [Concomitant]
     Active Substance: VALACYCLOVIR HYDROCHLORIDE
     Route: 050
  11. VERAMYST [Concomitant]
     Active Substance: FLUTICASONE FUROATE
     Route: 050
  12. VERAMYST [Concomitant]
     Active Substance: FLUTICASONE FUROATE
     Route: 050
  13. ALBUTEROL [Concomitant]
     Active Substance: ALBUTEROL
     Route: 050
  14. ALBUTEROL [Concomitant]
     Active Substance: ALBUTEROL
     Route: 050
  15. LORATADINE [Concomitant]
     Active Substance: LORATADINE
     Route: 050
  16. LORATADINE [Concomitant]
     Active Substance: LORATADINE
     Route: 050
  17. ZYRTEC [Concomitant]
     Active Substance: CETIRIZINE HYDROCHLORIDE
     Route: 050
  18. ZYRTEC [Concomitant]
     Active Substance: CETIRIZINE HYDROCHLORIDE
     Route: 050
  19. VITAMINS [Concomitant]
     Active Substance: VITAMINS
     Route: 050
  20. VITAMINS [Concomitant]
     Active Substance: VITAMINS
     Route: 050

REACTIONS (7)
  - Mite allergy [Not Recovered/Not Resolved]
  - Feeling abnormal [Unknown]
  - Mental status changes [Unknown]
  - Lethargy [Unknown]
  - Head discomfort [Unknown]
  - Seasonal allergy [Not Recovered/Not Resolved]
  - Dizziness [Unknown]
